FAERS Safety Report 8545938-9 (Version None)
Quarter: 2012Q3

REPORT INFORMATION
  Report Type: 
  Country: None (occurrence: None)
  Receive Date: 20120727
  Receipt Date: 20111122
  Transmission Date: 20120928
  Serious: No
  Sender: FDA-Public Use
  Company Number: US-ASTRAZENECA-2011SE71180

PATIENT
  Age: 38 Year
  Sex: Male

DRUGS (9)
  1. DULERA [Concomitant]
  2. VALIUM [Concomitant]
  3. BACLOFEN [Concomitant]
  4. KEFLEX [Concomitant]
  5. METHADONE HCL [Concomitant]
  6. VIAGRA [Concomitant]
  7. SEROQUEL [Suspect]
     Route: 048
  8. ADDERALL 5 [Concomitant]
  9. XANAX [Concomitant]

REACTIONS (3)
  - JOINT SWELLING [None]
  - BACK PAIN [None]
  - ERYTHEMA [None]
